FAERS Safety Report 23615900 (Version 2)
Quarter: 2024Q1

REPORT INFORMATION
  Report Type: Spontaneous
  Country: IT (occurrence: IT)
  Receive Date: 20240311
  Receipt Date: 20240318
  Transmission Date: 20240410
  Serious: Yes (Death)
  Sender: FDA-Public Use
  Company Number: None

PATIENT
  Age: 18 Year
  Sex: Male
  Weight: 76 kg

DRUGS (2)
  1. LEVETIRACETAM [Suspect]
     Active Substance: LEVETIRACETAM
     Indication: Epilepsy
     Dosage: 500 MILLIGRAM, BID (COATED TABLET)
     Route: 048
     Dates: start: 2021, end: 202211
  2. LEVETIRACETAM [Suspect]
     Active Substance: LEVETIRACETAM
     Dosage: 500 MILLIGRAM, BID (COATED TABLET)
     Route: 048
     Dates: start: 20211214, end: 2022

REACTIONS (6)
  - Completed suicide [Fatal]
  - Muscle rigidity [Unknown]
  - Muscle spasms [Not Recovered/Not Resolved]
  - Fatigue [Not Recovered/Not Resolved]
  - Depressed mood [Not Recovered/Not Resolved]
  - Off label use [Unknown]

NARRATIVE: CASE EVENT DATE: 20211214
